FAERS Safety Report 22027714 (Version 10)
Quarter: 2024Q3

REPORT INFORMATION
  Report Type: Report from Study
  Country: CN (occurrence: CN)
  Receive Date: 20230223
  Receipt Date: 20240903
  Transmission Date: 20241017
  Serious: Yes (Other)
  Sender: TAKEDA
  Company Number: CN-TAKEDA-2022TUS073291

PATIENT
  Age: 58 Year
  Sex: Male
  Weight: 62 kg

DRUGS (5)
  1. IXAZOMIB [Suspect]
     Active Substance: IXAZOMIB
     Indication: Plasma cell myeloma
     Dosage: 4 MILLIGRAM, 1/WEEK
     Route: 048
     Dates: start: 20220315, end: 20231014
  2. IBANDRONATE SODIUM [Concomitant]
     Active Substance: IBANDRONATE SODIUM
     Indication: Bone marrow disorder
     Dosage: 4 MILLIGRAM, QD
     Route: 042
     Dates: start: 20220615, end: 20220615
  3. LEUCOGEN [Concomitant]
     Active Substance: LEUCOGEN
     Indication: Prophylaxis
     Dosage: 20 MILLIGRAM, TID
     Route: 048
     Dates: start: 20220615, end: 20220714
  4. HERBALS\DIAMMONIUM GLYCYRRHIZINATE [Concomitant]
     Active Substance: HERBALS\DIAMMONIUM GLYCYRRHIZINATE
     Indication: Prophylaxis
     Dosage: 150 MILLIGRAM, TID
     Route: 048
     Dates: start: 20220615, end: 20220617
  5. ACYCLOVIR [Concomitant]
     Active Substance: ACYCLOVIR
     Indication: Antiviral prophylaxis
     Dosage: 0.6 GRAM
     Route: 048
     Dates: start: 20220615, end: 20220823

REACTIONS (11)
  - Pneumonitis [Not Recovered/Not Resolved]
  - Hypokalaemia [Recovered/Resolved]
  - Blood uric acid increased [Recovering/Resolving]
  - White blood cell count decreased [Not Recovered/Not Resolved]
  - Neutrophil count decreased [Not Recovered/Not Resolved]
  - Hypocalcaemia [Recovering/Resolving]
  - Rhinitis [Not Recovered/Not Resolved]
  - Anaemia [Recovered/Resolved]
  - Insomnia [Recovered/Resolved]
  - Off label use [Recovered/Resolved]
  - Platelet count decreased [Not Recovered/Not Resolved]

NARRATIVE: CASE EVENT DATE: 20220615
